FAERS Safety Report 8369717-0 (Version None)
Quarter: 2012Q1

REPORT INFORMATION
  Report Type: 
  Country: None (occurrence: None)
  Receive Date: 20120323
  Receipt Date: 20111222
  Transmission Date: 20120608
  Serious: Yes (Other)
  Sender: FDA-Public Use
  Company Number: 163-21880-11113818

PATIENT
  Age: 89 Year
  Sex: Male

DRUGS (3)
  1. REVLIMID [Suspect]
     Indication: MYELODYSPLASTIC SYNDROME
     Dosage: 5 MG, X 21 DAYS, OFF 7 DAYS, PO 10 MG, X 21 DAYS, OFF 7 DAYS, PO 10 MG, QOD
     Route: 048
     Dates: start: 20110831, end: 20111207
  2. REVLIMID [Suspect]
     Indication: MYELODYSPLASTIC SYNDROME
     Dosage: 5 MG, X 21 DAYS, OFF 7 DAYS, PO 10 MG, X 21 DAYS, OFF 7 DAYS, PO 10 MG, QOD
     Route: 048
     Dates: start: 20110207, end: 20110321
  3. REVLIMID [Suspect]
     Indication: MYELODYSPLASTIC SYNDROME
     Dosage: 5 MG, X 21 DAYS, OFF 7 DAYS, PO 10 MG, X 21 DAYS, OFF 7 DAYS, PO 10 MG, QOD
     Route: 048
     Dates: end: 20111019

REACTIONS (2)
  - PANCYTOPENIA [None]
  - WHITE BLOOD CELL COUNT DECREASED [None]
